FAERS Safety Report 10178200 (Version 1)
Quarter: 2014Q2

REPORT INFORMATION
  Report Type: Spontaneous
  Country: PH (occurrence: PH)
  Receive Date: 20140519
  Receipt Date: 20140519
  Transmission Date: 20141212
  Serious: Yes (Death)
  Sender: FDA-Public Use
  Company Number: PH-009507513-1405PHL007974

PATIENT
  Age: 33 Year
  Sex: Female

DRUGS (1)
  1. JANUVIA [Suspect]

REACTIONS (1)
  - Haematoma [Fatal]
